FAERS Safety Report 23294444 (Version 1)
Quarter: 2023Q4

REPORT INFORMATION
  Report Type: Spontaneous
  Country: IR (occurrence: IR)
  Receive Date: 20231213
  Receipt Date: 20231213
  Transmission Date: 20240109
  Serious: Yes (Hospitalization, Other)
  Sender: FDA-Public Use
  Company Number: IR-AMNEAL PHARMACEUTICALS-2023-AMRX-04313

PATIENT
  Age: 48 Year
  Sex: Female

DRUGS (1)
  1. TERIFLUNOMIDE [Suspect]
     Active Substance: TERIFLUNOMIDE
     Indication: Relapsing-remitting multiple sclerosis
     Dosage: UNK
     Route: 065

REACTIONS (1)
  - Ischaemic stroke [Unknown]
